FAERS Safety Report 14433922 (Version 1)
Quarter: 2018Q1

REPORT INFORMATION
  Report Type: Spontaneous
  Country: FR (occurrence: FR)
  Receive Date: 20180124
  Receipt Date: 20180124
  Transmission Date: 20180509
  Serious: Yes (Other)
  Sender: FDA-Public Use
  Company Number: FR-MYLANLABS-2018M1004582

PATIENT
  Sex: Female

DRUGS (24)
  1. ALIZAPRIDE [Concomitant]
     Active Substance: ALIZAPRIDE
     Indication: VOMITING
  2. MACROGOL [Concomitant]
     Active Substance: POLYETHYLENE GLYCOLS
     Indication: CONSTIPATION
     Dosage: UNK
  3. ESOMEPRAZOLE [Concomitant]
     Active Substance: ESOMEPRAZOLE
     Indication: NAUSEA
  4. HYDROXYZINE [Concomitant]
     Active Substance: HYDROXYZINE HYDROCHLORIDE
     Indication: ANXIETY
     Dosage: UNK
  5. VINCRISTINE [Suspect]
     Active Substance: VINCRISTINE
     Indication: ACUTE LYMPHOCYTIC LEUKAEMIA
     Dosage: 1.4 MG, UNK
     Route: 042
     Dates: start: 20161109, end: 20161109
  6. VINCRISTINE [Suspect]
     Active Substance: VINCRISTINE
     Dosage: 1.4 MG, UNK
     Route: 042
     Dates: start: 20161123, end: 20161123
  7. VINCRISTINE [Suspect]
     Active Substance: VINCRISTINE
     Dosage: 1.4 MG, UNK
     Route: 042
     Dates: start: 20161116, end: 20161116
  8. PARACETAMOL [Concomitant]
     Active Substance: ACETAMINOPHEN
     Indication: PAIN
     Dosage: UNK
  9. LEVOCARNITINE. [Concomitant]
     Active Substance: LEVOCARNITINE
     Indication: PRODUCT USED FOR UNKNOWN INDICATION
     Dosage: UNK
  10. ONDANSETRON [Concomitant]
     Active Substance: ONDANSETRON
     Indication: NAUSEA
     Dosage: UNK
  11. DEXAMETHASONE. [Suspect]
     Active Substance: DEXAMETHASONE
     Indication: ACUTE LYMPHOCYTIC LEUKAEMIA
     Dosage: 5.6 MG, UNK
     Route: 048
  12. METHOTREXATE. [Suspect]
     Active Substance: METHOTREXATE
     Indication: ACUTE LYMPHOCYTIC LEUKAEMIA
     Dosage: 12 MG, UNK
     Route: 037
     Dates: start: 20161125, end: 20161125
  13. PARACETAMOL [Concomitant]
     Active Substance: ACETAMINOPHEN
     Indication: PYREXIA
  14. VINCRISTINE [Suspect]
     Active Substance: VINCRISTINE
     Dosage: 1.4 MG, UNK
     Route: 042
     Dates: start: 20161130, end: 20161130
  15. ALIZAPRIDE [Concomitant]
     Active Substance: ALIZAPRIDE
     Indication: NAUSEA
     Dosage: UNK
  16. LACTULOSE. [Concomitant]
     Active Substance: LACTULOSE
     Indication: CONSTIPATION
     Dosage: UNK
  17. MONTELUKAST [Concomitant]
     Active Substance: MONTELUKAST SODIUM
     Indication: ASTHMA
     Dosage: UNK
  18. ESOMEPRAZOLE [Concomitant]
     Active Substance: ESOMEPRAZOLE
     Indication: GASTROOESOPHAGEAL REFLUX DISEASE
     Dosage: UNK
  19. AMOXICILLIN. [Concomitant]
     Active Substance: AMOXICILLIN
     Indication: PRODUCT USED FOR UNKNOWN INDICATION
     Dosage: UNK
  20. RASBURICASE [Concomitant]
     Active Substance: RASBURICASE
     Indication: ACUTE KIDNEY INJURY
     Dosage: UNK
  21. ESOMEPRAZOLE [Concomitant]
     Active Substance: ESOMEPRAZOLE
     Indication: VOMITING
  22. PEGASPARGASE [Suspect]
     Active Substance: PEGASPARGASE
     Indication: ACUTE LYMPHOCYTIC LEUKAEMIA
     Dosage: 1162.5 IU, UNK
     Route: 042
     Dates: start: 20161113, end: 20161113
  23. SALMETEROL [Concomitant]
     Active Substance: SALMETEROL
     Indication: ASTHMA
     Dosage: UNK
  24. ONDANSETRON [Concomitant]
     Active Substance: ONDANSETRON
     Indication: VOMITING

REACTIONS (1)
  - Blood fibrinogen decreased [Recovered/Resolved]

NARRATIVE: CASE EVENT DATE: 20161127
